FAERS Safety Report 20748323 (Version 2)
Quarter: 2022Q2

REPORT INFORMATION
  Report Type: Spontaneous
  Country: FR (occurrence: FR)
  Receive Date: 20220426
  Receipt Date: 20220510
  Transmission Date: 20220720
  Serious: Yes (Death)
  Sender: FDA-Public Use
  Company Number: None

PATIENT
  Age: 77 Year
  Sex: Female
  Weight: 63 kg

DRUGS (1)
  1. HALDOL [Suspect]
     Active Substance: HALOPERIDOL
     Indication: Hallucination
     Dosage: 4MG A 8H8MG A 18H, WITH DOSE X10 FOR 5 DAYS
     Route: 048
     Dates: start: 20220324, end: 20220328

REACTIONS (7)
  - Hypotension [Fatal]
  - Dyspnoea [Fatal]
  - Oxygen saturation decreased [Fatal]
  - Nausea [Fatal]
  - Altered state of consciousness [Fatal]
  - Accidental overdose [Fatal]
  - Medication error [Fatal]

NARRATIVE: CASE EVENT DATE: 20220301
